FAERS Safety Report 8780042 (Version 3)
Quarter: 2012Q4

REPORT INFORMATION
  Report Type: 
  Country: GB (occurrence: GB)
  Receive Date: 20120913
  Receipt Date: 20121001
  Transmission Date: 20130627
  Serious: Yes (Other)
  Sender: FDA-Public Use
  Company Number: GB-RANBAXY-2012R1-59694

PATIENT
  Age: 15 Year
  Sex: Female

DRUGS (4)
  1. CETIRIZINE [Suspect]
     Indication: SEASONAL ALLERGY
     Dosage: UNK
     Route: 048
  2. LAMOTRIGINE [Suspect]
     Indication: BIPOLAR DISORDER
     Dosage: UNK
     Route: 065
  3. ETONOGESTREL [Suspect]
     Indication: CONTRACEPTION
     Dosage: UNK
     Route: 065
  4. ABILIFY [Suspect]
     Indication: BIPOLAR DISORDER
     Dosage: UNK
     Route: 065

REACTIONS (4)
  - Pregnancy [Recovered/Resolved]
  - Abortion spontaneous [Unknown]
  - Exposure during pregnancy [Recovered/Resolved]
  - Unintended pregnancy [Recovered/Resolved]
